FAERS Safety Report 5153625-2 (Version None)
Quarter: 2006Q4

REPORT INFORMATION
  Report Type: 
  Country: None (occurrence: None)
  Receive Date: 20061114
  Receipt Date: 20031031
  Transmission Date: 20070319
  Serious: Yes (Hospitalization)
  Sender: FDA-Public Use
  Company Number: GXKR2006TR06952

PATIENT
  Age: 47 Year
  Sex: Female

DRUGS (2)
  1. METHYLPREDNISOLONE [Suspect]
     Indication: VASCULITIS CEREBRAL
     Dosage: 32 MG, DAY
  2. TOPIRAMATE [Concomitant]

REACTIONS (14)
  - ANOREXIA [None]
  - ASTHENIA [None]
  - BLOOD BILIRUBIN INCREASED [None]
  - CHROMATURIA [None]
  - DISCOMFORT [None]
  - FAECES PALE [None]
  - FATIGUE [None]
  - GAMMA-GLUTAMYLTRANSFERASE INCREASED [None]
  - HEPATIC ENZYME INCREASED [None]
  - HEPATITIS TOXIC [None]
  - JAUNDICE [None]
  - NAUSEA [None]
  - PRURITUS [None]
  - SELF-MEDICATION [None]
